FAERS Safety Report 24553164 (Version 1)
Quarter: 2024Q4

REPORT INFORMATION
  Report Type: Spontaneous
  Country: CN (occurrence: CN)
  Receive Date: 20241028
  Receipt Date: 20241028
  Transmission Date: 20250115
  Serious: Yes (Life-Threatening)
  Sender: ACCORD
  Company Number: None

PATIENT
  Age: 62 Year
  Sex: Male

DRUGS (6)
  1. TRASTUZUMAB [Suspect]
     Active Substance: TRASTUZUMAB
     Indication: Gastric neoplasm
     Dosage: STRENGTH: 150 MILLIGRAM, 330 MILLIGRAM, QD
     Dates: start: 20240908, end: 20240908
  2. SINTILIMAB [Suspect]
     Active Substance: SINTILIMAB
     Indication: Gastric neoplasm
     Dosage: 220 MILLIGRAM, QD
     Dates: start: 20240907, end: 20240907
  3. OXALIPLATIN [Suspect]
     Active Substance: OXALIPLATIN
     Indication: Gastric neoplasm
     Dosage: 120 MILLIGRAM, QD
     Dates: start: 20240907, end: 20240907
  4. LEVOLEUCOVORIN CALCIUM [Suspect]
     Active Substance: LEVOLEUCOVORIN CALCIUM
     Indication: Gastric neoplasm
     Dosage: 270 MILLIGRAM, QD
     Dates: start: 20240907, end: 20240907
  5. FLUOROURACIL [Suspect]
     Active Substance: FLUOROURACIL
     Indication: Gastric neoplasm
     Dosage: 0.54 GRAM, QD
     Dates: start: 20240907, end: 20240907
  6. FLUOROURACIL [Suspect]
     Active Substance: FLUOROURACIL
     Indication: Gastric neoplasm
     Dosage: 3.4 GRAM, QD
     Dates: start: 20240907, end: 20240907

REACTIONS (2)
  - Granulocyte count decreased [Recovered/Resolved]
  - White blood cell count decreased [Recovered/Resolved]

NARRATIVE: CASE EVENT DATE: 20240925
